FAERS Safety Report 11898366 (Version 1)
Quarter: 2016Q1

REPORT INFORMATION
  Report Type: Spontaneous
  Country: US (occurrence: None)
  Receive Date: 20160107
  Receipt Date: 20160107
  Transmission Date: 20160526
  Serious: Yes (Hospitalization)
  Sender: FDA-Public Use
  Company Number: None

PATIENT
  Age: 5 Year
  Sex: Male
  Weight: 24 kg

DRUGS (8)
  1. DEXAMETHASONE. [Suspect]
     Active Substance: DEXAMETHASONE
     Dates: end: 20150926
  2. CYCLOPHOSPHAMI [Suspect]
     Active Substance: CYCLOPHOSPHAMIDE
     Dates: end: 20121217
  3. MERCAPTOPURINE. [Concomitant]
     Active Substance: MERCAPTOPURINE
     Dates: end: 20150920
  4. DOXORUBICIN HYDROCHLORIDE. [Suspect]
     Active Substance: DOXORUBICIN HYDROCHLORIDE
     Dates: end: 20121120
  5. METHOTREXATE [Concomitant]
     Active Substance: METHOTREXATE
     Dates: end: 20150922
  6. CYTARABINE. [Suspect]
     Active Substance: CYTARABINE
     Dates: end: 20151229
  7. PEG-L-ASPARAGINASE (PEGASPARGASE. ONCOSPAR) [Concomitant]
     Dates: end: 20121123
  8. THIOGUANINE (6-TG) [Suspect]
     Active Substance: THIOGUANINE
     Dates: end: 20121231

REACTIONS (1)
  - Myelodysplastic syndrome [None]

NARRATIVE: CASE EVENT DATE: 20151218
